FAERS Safety Report 9049265 (Version 1)
Quarter: 2012Q4

REPORT INFORMATION
  Report Type: Spontaneous
  Country: US (occurrence: None)
  Receive Date: 20120905
  Receipt Date: 20120905
  Transmission Date: 20130627
  Serious: Yes (Other)
  Sender: FDA-Public Use
  Company Number: 2012P1051152

PATIENT
  Age: 42 Year
  Sex: Female

DRUGS (3)
  1. INFUMORPH [Suspect]
     Indication: MULTIPLE SCLEROSIS
     Dosage: 1 MG;     ; INTH
--/--/2010 - UNKNOWN
     Route: 037
     Dates: start: 2010
  2. INFUMORPH [Suspect]
     Indication: PAIN
     Dosage: 1 MG;     ; INTH
--/--/2010 - UNKNOWN
     Route: 037
     Dates: start: 2010
  3. BACLOFEN [Suspect]
     Indication: SPASMS
     Dosage: ; INTH
--/--2010 - UNKNOWN
     Route: 037

REACTIONS (1)
  - Device related infection [None]
